FAERS Safety Report 5829653-8 (Version None)
Quarter: 2008Q3

REPORT INFORMATION
  Report Type: 
  Country: None (occurrence: None)
  Receive Date: 20080729
  Receipt Date: 20080721
  Transmission Date: 20090109
  Serious: Yes (Life-Threatening, Hospitalization, Disabling, Other)
  Sender: FDA-Public Use
  Company Number: WAES 0804DEU00125

PATIENT
  Age: 48 Year
  Sex: Female

DRUGS (1)
  1. CAP VORINOSTAT [Suspect]
     Indication: MYCOSIS FUNGOIDES
     Dosage: 400 MG/DAILY PO
     Route: 048
     Dates: start: 20080321, end: 20080420

REACTIONS (12)
  - ARTHRALGIA [None]
  - ASTHENIA [None]
  - BLOOD CREATININE INCREASED [None]
  - BLOOD UREA INCREASED [None]
  - BONE METABOLISM DISORDER [None]
  - CONDITION AGGRAVATED [None]
  - HYPERCALCAEMIA [None]
  - HYPOCALCAEMIA [None]
  - RENAL IMPAIRMENT [None]
  - T-CELL LYMPHOMA [None]
  - THROMBOCYTOPENIA [None]
  - WEIGHT DECREASED [None]
